FAERS Safety Report 4911213-4 (Version None)
Quarter: 2006Q1

REPORT INFORMATION
  Report Type: 
  Country: None (occurrence: None)
  Receive Date: 20060209
  Receipt Date: 20031201
  Transmission Date: 20060701
  Serious: Yes (Death, Life-Threatening, Hospitalization)
  Sender: FDA-Public Use
  Company Number: HQ2968109JUL2001

PATIENT
  Age: 34 Year
  Sex: Male

DRUGS (28)
  1. GEMTUZUMAB OZOGAMICIN (GEMTUZUMAB OZOGAMICIN, INJECTION) [Suspect]
     Indication: ACUTE MYELOID LEUKAEMIA
     Dosage: 18 MG ONE TIME PER ONE DOSE, INTRAVENOUS
     Route: 042
     Dates: start: 20010625, end: 20010625
  2. AMPHOTERICIN B [Concomitant]
  3. CYCLIZINE (CYCLIZINDE) [Concomitant]
  4. AMILORIDE (AMILORIDE) [Concomitant]
  5. AMBISOME (AMPHOTERICINE B, LIPOSME) [Concomitant]
  6. PENTAMIDINE (PENTAMIDINE) [Concomitant]
  7. DAUNORUBUCIN (DAUNORUBUCIN) [Concomitant]
  8. SALBUTAMOL (SALBUTAMOL) [Concomitant]
  9. CHLORPHENAMINE (CHLORPHENAMINE) [Concomitant]
  10. MEPERIDINE HCL [Concomitant]
  11. CODEINE PHOSPHATE (CODEINE PHOSPHATE) [Concomitant]
  12. LORAZEPAM [Concomitant]
  13. GRANISETRON (GRANISETRON) [Concomitant]
  14. LOPERAMIDE HCL [Concomitant]
  15. POTASSIUM CHLORIDE [Concomitant]
  16. CYTARABINE [Concomitant]
  17. DOMPERIDONE (DOMPERIDONE) [Concomitant]
  18. CORSODYL (CHLORHEXIDINE GLUCONATE) [Concomitant]
  19. ALLOPURINOL [Concomitant]
  20. LANSOPRAZOLE [Concomitant]
  21. FLUCONAZOLE [Concomitant]
  22. ACYCLOVIR [Concomitant]
  23. ACETAMINOPHEN [Concomitant]
  24. TEICOPLANIN (TEICOPLANIN) [Concomitant]
  25. MEROPENEM (MEROPENEM) [Concomitant]
  26. GENTAMICIN [Concomitant]
  27. TAZOCIN (PIPERACILLIN/TAZOBACTAM) [Concomitant]
  28. BLOOD AND RELATED PRODUCTS (BLOOD AND RELATED PRODUCTS) [Concomitant]

REACTIONS (9)
  - ACUTE MYELOID LEUKAEMIA [None]
  - CARDIOVASCULAR DISORDER [None]
  - HEPATIC VEIN THROMBOSIS [None]
  - HEPATORENAL FAILURE [None]
  - LIVER DISORDER [None]
  - MULTI-ORGAN FAILURE [None]
  - PNEUMONIA FUNGAL [None]
  - RESPIRATORY DISORDER [None]
  - VENOOCCLUSIVE LIVER DISEASE [None]
